FAERS Safety Report 18737897 (Version 1)
Quarter: 2021Q1

REPORT INFORMATION
  Report Type: Spontaneous
  Country: CN (occurrence: CN)
  Receive Date: 20210113
  Receipt Date: 20210113
  Transmission Date: 20210419
  Serious: Yes (Other)
  Sender: FDA-Public Use
  Company Number: CN-BAXTER-2021BAX000532

PATIENT
  Age: 44 Year
  Sex: Female
  Weight: 57 kg

DRUGS (4)
  1. 0.9% SODIUM CHLORIDE INJECTION [Suspect]
     Active Substance: SODIUM CHLORIDE
     Indication: MEDICATION DILUTION
     Dosage: CYCLOPHOSPHAMIDE  0.9 G + 0.9% SODIUM CHLORIDE (NS) 50 ML
     Route: 041
     Dates: start: 20201216, end: 20201216
  2. STERILE WATER FOR INJECTION [Suspect]
     Active Substance: WATER
     Indication: MEDICATION DILUTION
     Dosage: EPIRUBICIN HYDROCHLORIDE 60 MG + STERILE WATER FOR INJECTION 40 ML
     Route: 041
     Dates: start: 20201216, end: 20201216
  3. ENDOXAN [Suspect]
     Active Substance: CYCLOPHOSPHAMIDE
     Indication: BREAST CANCER FEMALE
     Dosage: CYCLOPHOSPHAMIDE  0.9 G + 0.9% SODIUM CHLORIDE (NS) 50 ML
     Route: 041
     Dates: start: 20201216, end: 20201216
  4. EPIRUBICIN HYDROCHLORIDE. [Suspect]
     Active Substance: EPIRUBICIN HYDROCHLORIDE
     Indication: BREAST CANCER FEMALE
     Dosage: EPIRUBICIN HYDROCHLORIDE 60 MG + STERILE WATER FOR INJECTION 40 ML
     Route: 041
     Dates: start: 20201216, end: 20201216

REACTIONS (1)
  - Myelosuppression [Recovered/Resolved]

NARRATIVE: CASE EVENT DATE: 20201222
